FAERS Safety Report 8827991 (Version 1)
Quarter: 2012Q4

REPORT INFORMATION
  Report Type: 
  Country: US (occurrence: US)
  Receive Date: 20121005
  Receipt Date: 20121005
  Transmission Date: 20130627
  Serious: Yes (Hospitalization)
  Sender: FDA-Public Use
  Company Number: US-BAYER-2012-102711

PATIENT
  Age: 31 Year
  Sex: Female

DRUGS (3)
  1. YAZ [Suspect]
  2. YASMIN [Suspect]
  3. CIPRO [Concomitant]
     Indication: URINARY TRACT INFECTION

REACTIONS (3)
  - Pelvic venous thrombosis [None]
  - Deep vein thrombosis [Recovering/Resolving]
  - Pulmonary embolism [None]
